FAERS Safety Report 7509008-0 (Version None)
Quarter: 2011Q2

REPORT INFORMATION
  Report Type: 
  Country: None (occurrence: None)
  Receive Date: 20110527
  Receipt Date: 20110520
  Transmission Date: 20111010
  Serious: Yes (Hospitalization)
  Sender: FDA-Public Use
  Company Number: NZ-BAYER-201043842GPV

PATIENT
  Age: 55 Year
  Sex: Male
  Weight: 63.1 kg

DRUGS (13)
  1. SORAFENIB (RAF KINASE INHIBITOR) [Suspect]
     Indication: HEPATIC NEOPLASM MALIGNANT
     Dosage: 400 MG, BID
     Route: 048
     Dates: start: 20091027, end: 20091101
  2. ADEFOVIR DIPIVOXIL KIT [Concomitant]
     Indication: PRODUCT USED FOR UNKNOWN INDICATION
     Dosage: 10 MG QD, 3 MONTHS
     Route: 048
     Dates: start: 20101004
  3. MAXOLON [Concomitant]
     Dosage: 10 MG, PRN
     Route: 048
  4. FUROSEMIDE [Concomitant]
     Dosage: 20 MG, QD, 3 MONTHS
  5. BLINDED SORAFENIB (RAF KINASE INHIBITOR) [Suspect]
     Dosage: 150 MG, QD
     Route: 048
     Dates: start: 20091104, end: 20101019
  6. COTRIM [Concomitant]
     Indication: PROPHYLAXIS
     Dosage: 480 MG, BID, 3 MONTHS
     Route: 048
  7. SUCRALFATE [Concomitant]
     Dosage: 1 G, QID
  8. BLINDED SORAFENIB (RAF KINASE INHIBITOR) [Suspect]
     Indication: HEPATIC NEOPLASM MALIGNANT
     Dosage: 150 MG, QD
     Route: 048
     Dates: start: 20091028, end: 20091101
  9. FUROSEMIDE [Concomitant]
     Dosage: 40 MG, QD
  10. FORTISIP [Concomitant]
     Indication: PRODUCT USED FOR UNKNOWN INDICATION
     Dosage: 2 CANS
     Route: 048
     Dates: start: 20101004
  11. SORAFENIB (RAF KINASE INHIBITOR) [Suspect]
     Dosage: 400 MG, BID
     Route: 048
     Dates: start: 20091104, end: 20101019
  12. LAMIVUDINE [Concomitant]
     Indication: PRODUCT USED FOR UNKNOWN INDICATION
     Dosage: 100 MG, QD, 3 MONTHS
     Route: 048
     Dates: start: 20101004
  13. COTRIM [Concomitant]
     Dosage: 480 MG, BID

REACTIONS (2)
  - GASTROINTESTINAL HAEMORRHAGE [None]
  - OESOPHAGEAL VARICES HAEMORRHAGE [None]
